FAERS Safety Report 5442558-X (Version None)
Quarter: 2007Q3

REPORT INFORMATION
  Report Type: 
  Country: None (occurrence: None)
  Receive Date: 20070904
  Receipt Date: 20070827
  Transmission Date: 20080115
  Serious: Yes (Hospitalization)
  Sender: FDA-Public Use
  Company Number: PHEH2007US04717

PATIENT
  Age: 70 Year
  Sex: Female

DRUGS (8)
  1. LOTREL [Suspect]
     Indication: HYPERTENSION
     Dosage: UNK, QD
     Route: 048
     Dates: end: 20060401
  2. LOTREL [Suspect]
     Dosage: UNK, QD
     Route: 048
     Dates: end: 20060401
  3. FOSAMAX [Concomitant]
  4. ADVAIR DISKUS 100/50 [Concomitant]
     Dosage: UNK, QD
  5. XOPENEX [Concomitant]
     Dosage: 1.25 MG, QID
  6. SPIRIVA ^PFIZER^ [Concomitant]
     Dosage: 18 UNK, QD
  7. SINGULAIR [Concomitant]
     Dosage: UNK, QD
  8. OXYGEN [Concomitant]
     Indication: CHRONIC OBSTRUCTIVE PULMONARY DISEASE

REACTIONS (12)
  - BLOOD CREATININE INCREASED [None]
  - BLOOD POTASSIUM INCREASED [None]
  - BODY TEMPERATURE INCREASED [None]
  - CONFUSIONAL STATE [None]
  - DELIRIUM [None]
  - DRUG INTERACTION [None]
  - HERPES ZOSTER [None]
  - HYPOALBUMINAEMIA [None]
  - HYPONATRAEMIA [None]
  - HYPOTENSION [None]
  - RENAL FAILURE [None]
  - RESTLESSNESS [None]
